FAERS Safety Report 8170461-3 (Version None)
Quarter: 2012Q1

REPORT INFORMATION
  Report Type: 
  Country: None (occurrence: None)
  Receive Date: 20120104
  Receipt Date: 20110920
  Transmission Date: 20120608
  Serious: No
  Sender: FDA-Public Use
  Company Number: 2011HGS-002435

PATIENT
  Age: 41 Year
  Sex: Male
  Weight: 90.7194 kg

DRUGS (6)
  1. METHOTREXATE [Concomitant]
  2. PREDNISONE [Concomitant]
  3. PLAQUENIL (HYDROXYCHLOROQUINE SULFATE)(HYDROXYCHLOROQUINE SULFATE) [Concomitant]
  4. BENADRYL(DIPHENHYDRAMINE HYDROCHLORIDE)(DIPHENHYDRAMINE HYDROCHLORIDE) [Concomitant]
  5. TYLENOL (PARACETAMOL) (PARACETAMOL) [Concomitant]
  6. BENLYSTA [Suspect]
     Indication: SYSTEMIC LUPUS ERYTHEMATOSUS
     Dosage: 10 MG/KG, 1 IN 14 D, INTRAVENOUS DRIP
     Route: 041
     Dates: start: 20110718, end: 20110718

REACTIONS (11)
  - ABDOMINAL PAIN [None]
  - NAUSEA [None]
  - RASH [None]
  - TREMOR [None]
  - ABDOMINAL DISCOMFORT [None]
  - INFUSION RELATED REACTION [None]
  - FLUSHING [None]
  - PRURITUS [None]
  - BLOOD PRESSURE INCREASED [None]
  - VOMITING [None]
  - DIARRHOEA [None]
